FAERS Safety Report 9989363 (Version 2)
Quarter: 2014Q1

REPORT INFORMATION
  Report Type: Report from Study
  Country: CN (occurrence: CN)
  Receive Date: 20140310
  Receipt Date: 20140318
  Transmission Date: 20141002
  Serious: Yes (Hospitalization)
  Sender: FDA-Public Use
  Company Number: CN-AMGEN-CHNCT2014016535

PATIENT
  Age: 70 Year
  Sex: Male

DRUGS (7)
  1. DARBEPOETIN ALFA [Suspect]
     Indication: NEPHROGENIC ANAEMIA
     Dosage: 30 MUG, QWK
     Route: 042
     Dates: start: 20130930
  2. EPOETIN ALFA [Concomitant]
     Indication: NEPHROGENIC ANAEMIA
     Dosage: 9000 IU/WEEK
     Route: 042
     Dates: start: 20130805, end: 20130920
  3. AROTINOLOL HYDROCHLORIDE [Concomitant]
     Dosage: 10 MG, QD
     Route: 065
     Dates: start: 2013
  4. AMLODIPINE BESYLATE [Concomitant]
     Dosage: 5 MG, BID
     Route: 065
     Dates: start: 2013
  5. IRON COMPLEX                       /00023501/ [Concomitant]
     Dosage: 150 MG, BID
     Route: 065
     Dates: start: 2013
  6. ISOSORBIDE MONONITRATE [Concomitant]
     Dosage: 60 MG, QD
     Route: 065
     Dates: start: 2013
  7. ATORVASTATIN CALCIUM [Concomitant]
     Dosage: 20 MG QN
     Route: 065
     Dates: start: 2013

REACTIONS (1)
  - Gastrointestinal polyp haemorrhage [Recovering/Resolving]
